FAERS Safety Report 7305616-0 (Version None)
Quarter: 2011Q1

REPORT INFORMATION
  Report Type: 
  Country: None (occurrence: None)
  Receive Date: 20110222
  Receipt Date: 20110210
  Transmission Date: 20110831
  Serious: Yes (Other)
  Sender: FDA-Public Use
  Company Number: US-ROCHE-722569

PATIENT
  Sex: Male
  Weight: 54.4 kg

DRUGS (9)
  1. ACCUTANE [Suspect]
     Route: 065
     Dates: start: 20020128
  2. ACCUTANE [Suspect]
     Route: 065
     Dates: start: 20030121
  3. ACCUTANE [Suspect]
     Route: 065
     Dates: start: 20031110
  4. ACCUTANE [Suspect]
     Route: 065
     Dates: start: 20041004, end: 20050801
  5. ACCUTANE [Suspect]
     Route: 065
     Dates: start: 20000314
  6. ACCUTANE [Suspect]
     Route: 065
     Dates: start: 20010102
  7. ACCUTANE [Suspect]
     Route: 065
     Dates: start: 20010219
  8. ACCUTANE [Suspect]
     Route: 065
     Dates: start: 19970201
  9. ACCUTANE [Suspect]
     Route: 065
     Dates: start: 20040507

REACTIONS (6)
  - INFLAMMATORY BOWEL DISEASE [None]
  - SKIN PAPILLOMA [None]
  - SUICIDAL IDEATION [None]
  - DERMATITIS ATOPIC [None]
  - COLITIS ULCERATIVE [None]
  - PSEUDOFOLLICULITIS BARBAE [None]
